FAERS Safety Report 12537846 (Version 1)
Quarter: 2016Q3

REPORT INFORMATION
  Report Type: Spontaneous
  Country: US (occurrence: US)
  Receive Date: 20160707
  Receipt Date: 20160707
  Transmission Date: 20161109
  Serious: Yes (Hospitalization)
  Sender: FDA-Public Use
  Company Number: US-DSJP-DSU-2015-118715

PATIENT
  Age: 44 Year
  Sex: Female
  Weight: 122.9 kg

DRUGS (1)
  1. BENICAR HCT [Suspect]
     Active Substance: HYDROCHLOROTHIAZIDE\OLMESARTAN MEDOXOMIL
     Indication: HYPERTENSION
     Dosage: 40/25 MG
     Dates: start: 2005

REACTIONS (8)
  - Gastrointestinal injury [Unknown]
  - Fatigue [Unknown]
  - Asthenia [Unknown]
  - Malabsorption [Unknown]
  - Gastrooesophageal reflux disease [Unknown]
  - Alopecia [Unknown]
  - Lactose intolerance [Unknown]
  - Appetite disorder [Unknown]

NARRATIVE: CASE EVENT DATE: 20090321
